FAERS Safety Report 9324939 (Version 1)
Quarter: 2013Q2

REPORT INFORMATION
  Report Type: Spontaneous
  Country: FR (occurrence: FR)
  Receive Date: 20130603
  Receipt Date: 20130603
  Transmission Date: 20140414
  Serious: Yes (Hospitalization)
  Sender: FDA-Public Use
  Company Number: FR-PFIZER INC-2013163793

PATIENT
  Age: 59 Year
  Sex: Male

DRUGS (6)
  1. TAHOR [Suspect]
     Dosage: UNK
     Route: 048
  2. METHOTREXATE SODIUM [Suspect]
     Indication: PSORIASIS
     Dosage: UNK
     Dates: start: 201111
  3. SPECIAFOLDINE [Suspect]
     Dosage: UNK
     Route: 048
     Dates: start: 201111
  4. DIPROSONE [Suspect]
     Dosage: UNK
     Dates: start: 201011
  5. ODRIK [Suspect]
     Dosage: UNK
  6. FLUVASTATIN [Concomitant]

REACTIONS (2)
  - Squamous cell carcinoma [Recovered/Resolved]
  - Hyperplasia [Recovered/Resolved]
